FAERS Safety Report 16458382 (Version 2)
Quarter: 2019Q3

REPORT INFORMATION
  Report Type: Spontaneous
  Country: KR (occurrence: KR)
  Receive Date: 20190620
  Receipt Date: 20190709
  Transmission Date: 20191004
  Serious: Yes (Hospitalization)
  Sender: FDA-Public Use
  Company Number: KR-009507513-1906KOR006030

PATIENT
  Sex: Male

DRUGS (14)
  1. STREPTOKINASE [Concomitant]
     Active Substance: STREPTOKINASE
     Dosage: 310
     Route: 048
     Dates: start: 20190530
  2. FRAVASOL [Concomitant]
     Dosage: 500 MILLILITER
     Dates: start: 20190530
  3. KEYTRUDA [Suspect]
     Active Substance: PEMBROLIZUMAB
     Indication: SMALL CELL LUNG CANCER METASTATIC
     Dosage: UNK
     Dates: start: 20190531
  4. KEYTRUDA [Suspect]
     Active Substance: PEMBROLIZUMAB
     Dosage: UNK
     Dates: start: 20190601, end: 20190601
  5. MEGACE F [Concomitant]
     Dosage: 110
     Dates: start: 20190530
  6. COUGH SYRUP (AMMONIUM CHLORIDE (+) CHLORPHENIRAMINE MALEATE (+) DIHYDR [Concomitant]
     Dosage: 310
     Dates: start: 20190530
  7. IRCODON [Concomitant]
     Active Substance: OXYCODONE HYDROCHLORIDE
     Dosage: 310
     Dates: start: 20190530
  8. SOLONDO [Concomitant]
     Active Substance: PREDNISOLONE
     Dosage: 410
     Route: 048
     Dates: start: 20190530
  9. KEYTRUDA [Suspect]
     Active Substance: PEMBROLIZUMAB
     Dosage: (QUANTITY:2; DAYS: 1)
     Dates: start: 20190619, end: 20190619
  10. SODIUM CHLORIDE. [Concomitant]
     Active Substance: SODIUM CHLORIDE
     Dosage: 500 MILLILITER
     Dates: start: 20190601
  11. HEPARIN SODIUM. [Concomitant]
     Active Substance: HEPARIN SODIUM
     Dosage: 5 MILLILITER/11
     Dates: start: 20190601
  12. SODIUM CHLORIDE. [Concomitant]
     Active Substance: SODIUM CHLORIDE
     Dosage: 50 MILLILITER
     Dates: start: 20190601
  13. SODIUM CHLORIDE. [Concomitant]
     Active Substance: SODIUM CHLORIDE
     Dosage: 100 MILLILITER
     Dates: start: 20190601
  14. PENIRAMIN [Concomitant]
     Dosage: 11
     Route: 048
     Dates: start: 20190601

REACTIONS (3)
  - Oxygen therapy [Unknown]
  - Product use in unapproved indication [Unknown]
  - Adverse event [Unknown]

NARRATIVE: CASE EVENT DATE: 20190531
